FAERS Safety Report 6609872-3 (Version None)
Quarter: 2010Q1

REPORT INFORMATION
  Report Type: 
  Country: None (occurrence: None)
  Receive Date: 20100302
  Receipt Date: 20100222
  Transmission Date: 20100710
  Serious: Yes (Other)
  Sender: FDA-Public Use
  Company Number: PHHY2010BR10975

PATIENT
  Sex: Female
  Weight: 57 kg

DRUGS (6)
  1. EXELON [Suspect]
     Indication: SENILE DEMENTIA
     Dosage: 4.6 MG, QD
     Route: 062
     Dates: start: 20100202
  2. RISPERIDONE [Suspect]
     Dosage: UNK
     Dates: start: 20100202, end: 20100211
  3. METFORMIN HYDROCHLORIDE [Concomitant]
     Dosage: 1 TABLET/DAY
  4. ENALAPRIL MALEATE [Concomitant]
     Dosage: 10 MG, QD IN MORNING
  5. AAS [Concomitant]
     Dosage: 85 MG, QD AFTER LUNCH
  6. CALCIUM CITRATE W/VITAMIN D NOS [Concomitant]
     Dosage: 1 CAPSULE/DAY

REACTIONS (4)
  - CONFUSIONAL STATE [None]
  - HEADACHE [None]
  - HYPERTENSION [None]
  - INCREASED APPETITE [None]
